FAERS Safety Report 9628753 (Version 1)
Quarter: 2013Q4

REPORT INFORMATION
  Report Type: Spontaneous
  Country: US (occurrence: US)
  Receive Date: 20131017
  Receipt Date: 20131017
  Transmission Date: 20140711
  Serious: Yes (Other)
  Sender: FDA-Public Use
  Company Number: US-JNJFOC-20131007168

PATIENT
  Age: 26 Year
  Sex: Female
  Weight: 100.25 kg

DRUGS (4)
  1. REMICADE [Suspect]
     Indication: CROHN^S DISEASE
     Route: 042
  2. QUESTRAN [Concomitant]
     Route: 065
  3. ROBAXIN [Concomitant]
     Route: 065
  4. IRON [Concomitant]
     Route: 065

REACTIONS (1)
  - Hypertriglyceridaemia [Not Recovered/Not Resolved]
